FAERS Safety Report 8005203-5 (Version None)
Quarter: 2011Q4

REPORT INFORMATION
  Report Type: 
  Country: None (occurrence: None)
  Receive Date: 20111223
  Receipt Date: 20111220
  Transmission Date: 20120403
  Serious: Yes (Other)
  Sender: FDA-Public Use
  Company Number: PHHY2011US36942

PATIENT
  Sex: Female

DRUGS (3)
  1. RECLAST [Suspect]
     Indication: OSTEOPOROSIS
     Dosage: 5 MG(YEARLY), UNK
     Route: 042
     Dates: start: 20100510
  2. AMOXICILLIN [Concomitant]
     Dosage: 500 MG, UNK
     Dates: start: 20101025
  3. ACETAMINOPHEN [Concomitant]
     Dosage: UNK UKN, UNK
     Dates: start: 20101028

REACTIONS (1)
  - JAW DISORDER [None]
